FAERS Safety Report 4383619-6 (Version None)
Quarter: 2004Q2

REPORT INFORMATION
  Report Type: 
  Country: None (occurrence: None)
  Receive Date: 20040618
  Receipt Date: 20040604
  Transmission Date: 20050107
  Serious: Yes (Hospitalization)
  Sender: FDA-Public Use
  Company Number: 199428

PATIENT
  Age: 43 Year
  Sex: Female
  Weight: 136.0791 kg

DRUGS (6)
  1. AVONEX [Suspect]
     Indication: MULTIPLE SCLEROSIS
     Dosage: 30 MCG QW IM
     Route: 030
     Dates: start: 20020101, end: 20040101
  2. AVONEX [Suspect]
     Indication: MULTIPLE SCLEROSIS
     Dosage: 30 MCG QW IM
     Route: 030
     Dates: start: 20040101
  3. AMITRIPTYLINE HCL [Concomitant]
  4. SOMA [Concomitant]
  5. VICODIN [Concomitant]
  6. BLOOD PRESSURE MEDICATION (NOS) [Concomitant]

REACTIONS (10)
  - DIABETES MELLITUS [None]
  - FALL [None]
  - HYPOAESTHESIA [None]
  - INFLUENZA LIKE ILLNESS [None]
  - JOINT SPRAIN [None]
  - MUSCLE STRAIN [None]
  - MUSCULAR WEAKNESS [None]
  - OEDEMA PERIPHERAL [None]
  - PYREXIA [None]
  - TREMOR [None]
